FAERS Safety Report 9325111 (Version 1)
Quarter: 2013Q2

REPORT INFORMATION
  Report Type: Spontaneous
  Country: None (occurrence: None)
  Receive Date: 20130529
  Receipt Date: 20130529
  Transmission Date: 20140414
  Serious: Yes (Other)
  Sender: FDA-Public Use
  Company Number: 2013P1006270

PATIENT
  Age: 76 Year
  Sex: Male

DRUGS (3)
  1. INFUMORPH [Suspect]
     Indication: PAIN
  2. INFUMORPH [Suspect]
     Indication: POST LAMINECTOMY SYNDROME
  3. INFUMORPH [Suspect]
     Indication: SPINAL PAIN

REACTIONS (4)
  - Device occlusion [None]
  - Drug ineffective [None]
  - Device leakage [None]
  - Pain [None]
